FAERS Safety Report 24204167 (Version 2)
Quarter: 2024Q4

REPORT INFORMATION
  Report Type: Spontaneous
  Country: US (occurrence: US)
  Receive Date: 20240813
  Receipt Date: 20241017
  Transmission Date: 20250115
  Serious: No
  Sender: AMGEN
  Company Number: US-AMGEN-USASP2024156772

PATIENT
  Age: 70 Year
  Sex: Male
  Weight: 87.75 kg

DRUGS (1)
  1. NEULASTA [Suspect]
     Active Substance: PEGFILGRASTIM
     Indication: Prophylaxis
     Dosage: UNK
     Route: 065

REACTIONS (4)
  - Device occlusion [Unknown]
  - Drug dose omission by device [Unknown]
  - Wrong technique in product usage process [Unknown]
  - Device use error [Unknown]

NARRATIVE: CASE EVENT DATE: 20240806
